FAERS Safety Report 13460563 (Version 1)
Quarter: 2017Q2

REPORT INFORMATION
  Report Type: Spontaneous
  Country: US (occurrence: US)
  Receive Date: 20170420
  Receipt Date: 20170420
  Transmission Date: 20170830
  Serious: No
  Sender: FDA-Public Use
  Company Number: US-PFIZER INC-2017171245

PATIENT
  Age: 60 Year
  Sex: Female
  Weight: 67.13 kg

DRUGS (1)
  1. GABAPENTIN. [Suspect]
     Active Substance: GABAPENTIN
     Dosage: MAXED OUT AT 3200 MG
     Dates: start: 2008, end: 201407

REACTIONS (1)
  - Drug ineffective [Unknown]
